FAERS Safety Report 19140714 (Version 1)
Quarter: 2021Q2

REPORT INFORMATION
  Report Type: Spontaneous
  Country: DE (occurrence: DE)
  Receive Date: 20210415
  Receipt Date: 20210415
  Transmission Date: 20210717
  Serious: Yes (Hospitalization)
  Sender: FDA-Public Use
  Company Number: DE-TEVA-2021-DE-1900411

PATIENT
  Age: 38 Year
  Sex: Female

DRUGS (3)
  1. DULOXETIN [Suspect]
     Active Substance: DULOXETINE
     Dosage: 90 MILLIGRAM DAILY; 30 MG, 3?0?0?0:UNIT DOSE:90MILLIGRAM
  2. QUETIAPIN [Suspect]
     Active Substance: QUETIAPINE
     Dosage: 100 MILLIGRAM DAILY; 1?0?0?0
  3. QUETIAPIN [Suspect]
     Active Substance: QUETIAPINE
     Dosage: 25 MILLIGRAM DAILY; 0?0?0?1

REACTIONS (3)
  - Wound [Unknown]
  - Abscess limb [Unknown]
  - Intentional self-injury [Unknown]
